FAERS Safety Report 20031456 (Version 2)
Quarter: 2021Q4

REPORT INFORMATION
  Report Type: Report from Study
  Country: US (occurrence: US)
  Receive Date: 20211103
  Receipt Date: 20211114
  Transmission Date: 20220303
  Serious: Yes (Other)
  Sender: FDA-Public Use
  Company Number: US-ABBVIE-21K-163-4139835-00

PATIENT
  Age: 71 Year
  Sex: Male

DRUGS (5)
  1. DUOPA [Suspect]
     Active Substance: CARBIDOPA\LEVODOPA
     Indication: Parkinson^s disease
     Route: 050
     Dates: start: 2015, end: 20210617
  2. DUOPA [Suspect]
     Active Substance: CARBIDOPA\LEVODOPA
     Route: 050
     Dates: start: 20210628
  3. MORPHINE [Concomitant]
     Active Substance: MORPHINE
     Indication: Product used for unknown indication
  4. CARBIDOPA\LEVODOPA [Concomitant]
     Active Substance: CARBIDOPA\LEVODOPA
     Indication: Product used for unknown indication
  5. CANNABIDIOL\HERBALS [Concomitant]
     Active Substance: CANNABIDIOL\HERBALS
     Indication: Product used for unknown indication

REACTIONS (15)
  - Oral surgery [Recovering/Resolving]
  - Abdominal discomfort [Unknown]
  - Eating disorder [Recovered/Resolved]
  - Device dislocation [Recovered/Resolved]
  - Mental disorder [Unknown]
  - General physical health deterioration [Unknown]
  - Contusion [Unknown]
  - Balance disorder [Recovered/Resolved]
  - Adverse food reaction [Unknown]
  - Tremor [Unknown]
  - Fall [Recovered/Resolved]
  - Unintentional medical device removal [Recovered/Resolved]
  - Skin laceration [Recovered/Resolved]
  - Fall [Recovered/Resolved]
  - Device dislocation [Recovered/Resolved]

NARRATIVE: CASE EVENT DATE: 20210601
